FAERS Safety Report 24376534 (Version 1)
Quarter: 2024Q3

REPORT INFORMATION
  Report Type: Spontaneous
  Country: FR (occurrence: FR)
  Receive Date: 20240930
  Receipt Date: 20240930
  Transmission Date: 20241017
  Serious: Yes (Other)
  Sender: MERCK KGAA
  Company Number: FR-Merck Healthcare KGaA-2024049784

PATIENT
  Sex: Female

DRUGS (1)
  1. LEVOTHYROXINE [Suspect]
     Active Substance: LEVOTHYROXINE\LEVOTHYROXINE SODIUM
     Indication: Product used for unknown indication
     Dosage: FOR 20 YEARS

REACTIONS (5)
  - Syncope [Unknown]
  - Dizziness [Unknown]
  - Discomfort [Unknown]
  - Cardiac disorder [Recovered/Resolved]
  - Atrial fibrillation [Unknown]
